FAERS Safety Report 8983687 (Version 1)
Quarter: 2012Q4

REPORT INFORMATION
  Report Type: 
  Country: IT (occurrence: IT)
  Receive Date: 20121224
  Receipt Date: 20121224
  Transmission Date: 20130627
  Serious: Yes (Other)
  Sender: FDA-Public Use
  Company Number: PHHY2012IT117719

PATIENT
  Age: 21 Year
  Sex: Male

DRUGS (1)
  1. METHYLPHENIDATE [Suspect]
     Indication: ATTENTION DEFICIT/HYPERACTIVITY DISORDER

REACTIONS (6)
  - Paradoxical drug reaction [Recovered/Resolved]
  - Compulsive handwashing [Recovered/Resolved]
  - Fear [Recovered/Resolved]
  - Anger [Unknown]
  - Insomnia [Recovered/Resolved]
  - Aggression [Unknown]
